FAERS Safety Report 5727428-1 (Version None)
Quarter: 2008Q2

REPORT INFORMATION
  Report Type: 
  Country: None (occurrence: None)
  Receive Date: 20080505
  Receipt Date: 20080501
  Transmission Date: 20081010
  Serious: Yes (Death)
  Sender: FDA-Public Use
  Company Number: NZ-ASTRAZENECA-2008AP03327

PATIENT
  Sex: Male
  Weight: 80 kg

DRUGS (1)
  1. NAROPIN [Suspect]
     Indication: ABDOMINAL OPERATION
     Dosage: 750MG BOLUS DOSES OF 20ML OVER 24 HOURS

REACTIONS (1)
  - DEATH [None]
